FAERS Safety Report 12066509 (Version 1)
Quarter: 2016Q1

REPORT INFORMATION
  Report Type: Spontaneous
  Country: US (occurrence: None)
  Receive Date: 20160210
  Receipt Date: 20160210
  Transmission Date: 20160526
  Serious: Yes (Other)
  Sender: FDA-Public Use
  Company Number: None

PATIENT
  Age: 75 Year
  Sex: Female

DRUGS (9)
  1. FUROSEMIDE. [Concomitant]
     Active Substance: FUROSEMIDE
  2. TAMSULOSIN [Concomitant]
     Active Substance: TAMSULOSIN
  3. H.P. ACTHAR [Suspect]
     Active Substance: CORTICOTROPIN
     Indication: MULTIPLE SCLEROSIS
     Route: 058
     Dates: start: 20160203, end: 20160205
  4. LISINOPRIL. [Concomitant]
     Active Substance: LISINOPRIL
  5. BACLOFEN. [Concomitant]
     Active Substance: BACLOFEN
  6. PRAVASTATIN [Concomitant]
     Active Substance: PRAVASTATIN\PRAVASTATIN SODIUM
  7. METOPROLOL. [Concomitant]
     Active Substance: METOPROLOL
  8. CLONAZEPAM. [Concomitant]
     Active Substance: CLONAZEPAM
  9. CIPROFLOXACIN. [Concomitant]
     Active Substance: CIPROFLOXACIN

REACTIONS (1)
  - Blood pressure increased [None]

NARRATIVE: CASE EVENT DATE: 20160203
